FAERS Safety Report 8494253-0 (Version None)
Quarter: 2012Q2

REPORT INFORMATION
  Report Type: 
  Country: None (occurrence: None)
  Receive Date: 20120628
  Receipt Date: 20120625
  Transmission Date: 20120825
  Serious: Yes (Death)
  Sender: FDA-Public Use
  Company Number: CIP-2012-00225

PATIENT

DRUGS (3)
  1. PACLITAXEL [Suspect]
     Indication: NON-SMALL CELL LUNG CANCER STAGE III
     Dosage: 40 MG/M2 (DAYS 1, 8, 15, AND 22), INTRAVENOUS 200 MG/M2 (EVERY 3 WEEKS), INTRAVENOUS
     Route: 042
  2. CARBOPLATIN [Suspect]
     Indication: NON-SMALL CELL LUNG CANCER STAGE III
     Dosage: SEE IMAGE
     Route: 042
  3. THORACIC RADIOTHERAPY (OTHER DIAGNOSTIC RADIOPHARMACEUTICALS) [Suspect]
     Indication: NON-SMALL CELL LUNG CANCER STAGE III
     Dosage: 1.5 GY PER FRACTION (TWICE A DAY; 5 DAYS A WEEK)

REACTIONS (1)
  - PNEUMONITIS [None]
